FAERS Safety Report 9295728 (Version 1)
Quarter: 2013Q1

REPORT INFORMATION
  Report Type: Spontaneous
  Country: US (occurrence: None)
  Receive Date: 20121227
  Receipt Date: 20121227
  Transmission Date: 20140127
  Serious: No
  Sender: FDA-Public Use
  Company Number: PHEH2012US022696

PATIENT
  Age: 60 Year
  Sex: Female
  Weight: 52.2 kg

DRUGS (13)
  1. AFINITOR [Suspect]
     Dosage: 1 DF EVERY DAY ORAL
     Route: 048
  2. FISH OIL(FISH OIL) [Concomitant]
  3. CALCIUM(CALCIUM) [Concomitant]
  4. COQ-10(UBIDECARENONE) [Concomitant]
  5. PHYTOSTEROLS NOS (PHYTOSTEROLS NOS) [Concomitant]
  6. ALPHA LIPOIC ACID (THIOCTIC ACID) [Concomitant]
  7. VITAMIN D (ERGOCALCIFEROL) [Concomitant]
  8. MULTI-VIT(VITAMINS NOS) [Concomitant]
  9. DIBENZYLINE (PENOXYBENZAMINE HYDROCHLORIDE) [Concomitant]
  10. MAGNESIUM(MAGNESIUM) [Concomitant]
  11. VITAMIN B (VITAMIN B COMPLEX) [Concomitant]
  12. EXEMESTANE [Suspect]
  13. VITAMIN C AND E [Suspect]

REACTIONS (5)
  - Contusion [None]
  - Rash [None]
  - Fatigue [None]
  - Nasopharyngitis [None]
  - Oral pain [None]
